FAERS Safety Report 7292265-6 (Version None)
Quarter: 2011Q1

REPORT INFORMATION
  Report Type: 
  Country: None (occurrence: None)
  Receive Date: 20110215
  Receipt Date: 20110207
  Transmission Date: 20110831
  Serious: Yes (Other)
  Sender: FDA-Public Use
  Company Number: GB-TEVA-266213ISR

PATIENT
  Age: 44 Year
  Sex: Male

DRUGS (1)
  1. PROPRANOLOL [Suspect]
     Indication: HYPERTENSION

REACTIONS (2)
  - RAPID EYE MOVEMENTS SLEEP ABNORMAL [None]
  - PARASOMNIA [None]
